FAERS Safety Report 17085599 (Version 1)
Quarter: 2019Q4

REPORT INFORMATION
  Report Type: Spontaneous
  Country: DE (occurrence: DE)
  Receive Date: 20191128
  Receipt Date: 20191128
  Transmission Date: 20200122
  Serious: Yes (Life-Threatening)
  Sender: FDA-Public Use
  Company Number: DE-ACCORD-162350

PATIENT
  Age: 55 Year
  Sex: Female
  Weight: 52 kg

DRUGS (1)
  1. OXALIPLATIN ACCORD [Suspect]
     Active Substance: OXALIPLATIN
     Indication: ADENOCARCINOMA
     Dosage: STRENGTH: 5 MG / ML
     Route: 042

REACTIONS (6)
  - Off label use [Unknown]
  - Discomfort [Recovered/Resolved]
  - Rash pruritic [Unknown]
  - Dry mouth [Recovered/Resolved]
  - Stridor [Recovered/Resolved]
  - Dyspnoea [Recovered/Resolved]
